FAERS Safety Report 6467013-X (Version None)
Quarter: 2009Q4

REPORT INFORMATION
  Report Type: 
  Country: None (occurrence: None)
  Receive Date: 20091202
  Receipt Date: 20091125
  Transmission Date: 20100525
  Serious: Yes (Other)
  Sender: FDA-Public Use
  Company Number: FR-JNJFOC-20091108175

PATIENT
  Sex: Male

DRUGS (6)
  1. REMICADE [Suspect]
     Route: 042
     Dates: start: 20080613, end: 20080901
  2. REMICADE [Suspect]
     Indication: ANKYLOSING SPONDYLITIS
     Route: 042
     Dates: start: 20080613, end: 20080901
  3. NEURONTIN [Concomitant]
  4. RIVOTRIL [Concomitant]
  5. SALAZOPYRINE [Concomitant]
  6. MONOALGIC [Concomitant]

REACTIONS (1)
  - BASAL CELL CARCINOMA [None]
